FAERS Safety Report 4746137-9 (Version None)
Quarter: 2005Q3

REPORT INFORMATION
  Report Type: 
  Country: None (occurrence: None)
  Receive Date: 20050816
  Receipt Date: 20050810
  Transmission Date: 20060218
  Serious: No
  Sender: FDA-Public Use
  Company Number: 2005-268R

PATIENT
  Sex: Male

DRUGS (1)
  1. HIBICLENS 4% CHG [Suspect]
     Indication: ANTI-INFECTIVE THERAPY
     Dosage: 4% CHG, TOPICAL, DERMAL
     Route: 061

REACTIONS (4)
  - ERYTHEMA [None]
  - OEDEMA PERIPHERAL [None]
  - OFF LABEL USE [None]
  - PAIN IN EXTREMITY [None]
